FAERS Safety Report 5244278-3 (Version None)
Quarter: 2007Q1

REPORT INFORMATION
  Report Type: 
  Country: None (occurrence: None)
  Receive Date: 20070216
  Receipt Date: 20070201
  Transmission Date: 20070707
  Serious: Yes (Death, Other)
  Sender: FDA-Public Use
  Company Number: RENA-12035

PATIENT
  Age: 69 Year
  Sex: Male
  Weight: 61 kg

DRUGS (6)
  1. RENAGEL [Suspect]
     Indication: HYPERPHOSPHATAEMIA
     Dosage: 0.8 G TID PO
     Route: 048
     Dates: start: 20031201, end: 20061114
  2. FABRAZYME [Suspect]
     Indication: FABRY'S DISEASE
     Dosage: 60 MG Q2WKS IV
     Route: 042
     Dates: start: 20040914, end: 20060801
  3. NEXIUM [Concomitant]
  4. CETIRIZINE HCL [Concomitant]
  5. TRAMADOL HCL [Concomitant]
  6. LOVENOX [Concomitant]

REACTIONS (8)
  - CARDIOPULMONARY FAILURE [None]
  - COLITIS [None]
  - GASTROINTESTINAL HAEMORRHAGE [None]
  - HYPOTHYROIDISM [None]
  - INFECTED SKIN ULCER [None]
  - SEPTIC SHOCK [None]
  - SKIN ULCER [None]
  - SUPERINFECTION [None]
